FAERS Safety Report 25787659 (Version 2)
Quarter: 2025Q3

REPORT INFORMATION
  Report Type: Spontaneous
  Country: US (occurrence: US)
  Receive Date: 20250910
  Receipt Date: 20250911
  Transmission Date: 20251021
  Serious: No
  Sender: Haleon PLC
  Company Number: US-HALEON-2262039

PATIENT
  Sex: Female

DRUGS (2)
  1. TUMS CHEWY BITES ORANGE AND CREAM ES [Suspect]
     Active Substance: CALCIUM CARBONATE
     Indication: Dyspepsia
  2. TUMS [Suspect]
     Active Substance: CALCIUM CARBONATE
     Indication: Dyspepsia

REACTIONS (3)
  - Exposure during pregnancy [Unknown]
  - Drug ineffective [Unknown]
  - Product packaging issue [Unknown]
